FAERS Safety Report 9660805 (Version 2)
Quarter: 2013Q4

REPORT INFORMATION
  Report Type: Spontaneous
  Country: GB (occurrence: GB)
  Receive Date: 20131031
  Receipt Date: 20131105
  Transmission Date: 20140711
  Serious: Yes (Life-Threatening, Hospitalization)
  Sender: FDA-Public Use
  Company Number: GB-GLAXOSMITHKLINE-B0932739A

PATIENT
  Age: 26 Year
  Sex: Female
  Weight: 70 kg

DRUGS (6)
  1. NICORETTE [Suspect]
     Indication: SMOKING CESSATION THERAPY
     Route: 055
     Dates: start: 20130819, end: 20130820
  2. LAMOTRIGINE [Suspect]
     Indication: CONVULSION
     Dosage: 150MG PER DAY
     Route: 048
     Dates: start: 20130819
  3. OXCARBAZEPINE [Concomitant]
  4. SERETIDE [Concomitant]
  5. SALBUTAMOL [Concomitant]
  6. CITALOPRAM [Concomitant]

REACTIONS (1)
  - Toxic epidermal necrolysis [Recovering/Resolving]
